FAERS Safety Report 5591214-6 (Version None)
Quarter: 2008Q1

REPORT INFORMATION
  Report Type: 
  Country: None (occurrence: None)
  Receive Date: 20080115
  Receipt Date: 20070116
  Transmission Date: 20080703
  Serious: No
  Sender: FDA-Public Use
  Company Number: US-ABBOTT-07P-163-0356427-00

PATIENT

DRUGS (2)
  1. HYTRIN [Suspect]
     Indication: PROSTATIC DISORDER
     Route: 048
  2. HYTRIN [Suspect]

REACTIONS (2)
  - DIZZINESS [None]
  - INTRAOCULAR PRESSURE DECREASED [None]
